FAERS Safety Report 25137697 (Version 1)
Quarter: 2025Q1

REPORT INFORMATION
  Report Type: Spontaneous
  Country: US (occurrence: US)
  Receive Date: 20250329
  Receipt Date: 20250329
  Transmission Date: 20250409
  Serious: Yes (Death, Hospitalization, Other)
  Sender: GRAVITI PHARMACEUTICALS PRIVATE LIMITED
  Company Number: US-GRAVITIPHARMA-GRA-2503-US-LIT-0161

PATIENT
  Age: 53 Year
  Sex: Male

DRUGS (5)
  1. BUPROPION [Suspect]
     Active Substance: BUPROPION
     Indication: Product used for unknown indication
     Route: 065
  2. ALCOHOL [Suspect]
     Active Substance: ALCOHOL
     Indication: Product used for unknown indication
     Route: 065
  3. LACOSAMIDE [Suspect]
     Active Substance: LACOSAMIDE
     Indication: Product used for unknown indication
     Route: 065
  4. MIDODRINE [Suspect]
     Active Substance: MIDODRINE
     Indication: Product used for unknown indication
     Route: 065
  5. OLANZAPINE [Suspect]
     Active Substance: OLANZAPINE
     Indication: Product used for unknown indication
     Route: 065

REACTIONS (15)
  - Respiratory depression [Fatal]
  - Hypotension [Fatal]
  - Tachycardia [Fatal]
  - Arrhythmia [Fatal]
  - Electrocardiogram QRS complex prolonged [Fatal]
  - Electrocardiogram QT prolonged [Fatal]
  - Depressed level of consciousness [Fatal]
  - Seizure [Fatal]
  - Metabolic acidosis [Fatal]
  - Hepatotoxicity [Fatal]
  - Haemolysis [Fatal]
  - Thrombocytopenia [Fatal]
  - Leukocytosis [Fatal]
  - Acute kidney injury [Fatal]
  - Toxicity to various agents [Fatal]
